FAERS Safety Report 15466987 (Version 4)
Quarter: 2019Q3

REPORT INFORMATION
  Report Type: Report from Study
  Country: US (occurrence: US)
  Receive Date: 20181005
  Receipt Date: 20190731
  Transmission Date: 20191004
  Serious: No
  Sender: FDA-Public Use
  Company Number: PHEH2018US041212

PATIENT
  Age: 29 Year
  Sex: Female

DRUGS (1)
  1. GILENYA [Suspect]
     Active Substance: FINGOLIMOD HYDROCHLORIDE
     Indication: RELAPSING MULTIPLE SCLEROSIS
     Dosage: 0.5 MG, QD
     Route: 048
     Dates: start: 20180831

REACTIONS (7)
  - Oropharyngeal pain [Unknown]
  - Hypoaesthesia [Unknown]
  - Sinusitis [Unknown]
  - Vertigo [Unknown]
  - Fatigue [Unknown]
  - Headache [Unknown]
  - Stress [Unknown]

NARRATIVE: CASE EVENT DATE: 20190701
